FAERS Safety Report 12006184 (Version 1)
Quarter: 2016Q1

REPORT INFORMATION
  Report Type: Spontaneous
  Country: FR (occurrence: FR)
  Receive Date: 20160205
  Receipt Date: 20160205
  Transmission Date: 20160526
  Serious: Yes (Hospitalization)
  Sender: FDA-Public Use
  Company Number: FR-009507513-1602FRA000926

PATIENT
  Age: 66 Year
  Sex: Female

DRUGS (2)
  1. AMOXICILLIN. [Suspect]
     Active Substance: AMOXICILLIN
     Dosage: 1 G, ONCE IN THE MORNING
     Route: 048
     Dates: start: 20140625, end: 20140625
  2. CELESTENE [Suspect]
     Active Substance: BETAMETHASONE
     Dosage: 2 MG, TWICE IN THE MORNING
     Route: 048
     Dates: start: 20140625, end: 20140625

REACTIONS (7)
  - Erythema [Not Recovered/Not Resolved]
  - Malaise [Recovered/Resolved]
  - Loss of consciousness [Recovered/Resolved]
  - Abdominal pain upper [Recovered/Resolved]
  - Vomiting [Recovered/Resolved]
  - Hypotension [Recovering/Resolving]
  - Pruritus [Recovering/Resolving]

NARRATIVE: CASE EVENT DATE: 20140625
